FAERS Safety Report 16819124 (Version 1)
Quarter: 2019Q3

REPORT INFORMATION
  Report Type: Spontaneous
  Country: PL (occurrence: PL)
  Receive Date: 20190917
  Receipt Date: 20190917
  Transmission Date: 20191005
  Serious: Yes (Death, Other)
  Sender: FDA-Public Use
  Company Number: PL-MYLANLABS-2019M1086988

PATIENT
  Age: 64 Year
  Sex: Female

DRUGS (8)
  1. FUROSEMIDE. [Suspect]
     Active Substance: FUROSEMIDE
     Indication: PRODUCT USED FOR UNKNOWN INDICATION
     Dosage: UNK
  2. OLANZAPINE. [Suspect]
     Active Substance: OLANZAPINE
     Indication: PRODUCT USED FOR UNKNOWN INDICATION
     Dosage: 10 MILLIGRAM, QD, BEFORE SLEEP
  3. MORPHINE HYDROCHLORIDE [Interacting]
     Active Substance: MORPHINE HYDROCHLORIDE
     Indication: NEURALGIA
     Dosage: 240 MG, QD
     Route: 048
  4. POTASSIUM [Concomitant]
     Active Substance: POTASSIUM
     Dosage: UNK
  5. LOW MOLECULAR WEIGHT HEPARIN [Concomitant]
     Active Substance: UNSPECIFIED INGREDIENT
     Dosage: UNK (AT A PROPHYLACTIC DOSE)
  6. AMITRIPTYLINE HYDROCHLORIDE. [Interacting]
     Active Substance: AMITRIPTYLINE HYDROCHLORIDE
     Indication: PRODUCT USED FOR UNKNOWN INDICATION
     Dosage: 150 MG, QD (3 X 50 G)
  7. FUROSEMIDE. [Suspect]
     Active Substance: FUROSEMIDE
     Dosage: 60 MG, QD
  8. FLUCONAZOLE. [Interacting]
     Active Substance: FLUCONAZOLE
     Indication: FUNGAL INFECTION
     Dosage: 200 MG, QD
     Route: 048

REACTIONS (12)
  - Cardiac arrest [Fatal]
  - Confusional state [Unknown]
  - Haemoptysis [Fatal]
  - Drug interaction [Unknown]
  - Pulmonary artery thrombosis [Fatal]
  - Dyspnoea [Fatal]
  - Cyanosis [Fatal]
  - Cough [Fatal]
  - Oedema peripheral [Fatal]
  - Nausea [Recovered/Resolved]
  - Chest pain [Fatal]
  - Somnolence [Unknown]
